FAERS Safety Report 5976665-X (Version None)
Quarter: 2008Q4

REPORT INFORMATION
  Report Type: 
  Country: None (occurrence: None)
  Receive Date: 20081201
  Receipt Date: 20081201
  Transmission Date: 20090506
  Serious: Yes (Other)
  Sender: FDA-Public Use
  Company Number: None

PATIENT
  Age: 29 Year
  Sex: Male
  Weight: 87.5442 kg

DRUGS (1)
  1. ADDERALL XR 20 [Suspect]
     Indication: ATTENTION DEFICIT/HYPERACTIVITY DISORDER
     Dosage: 20 MG 1 A DAY
     Dates: start: 20070301

REACTIONS (4)
  - AGITATION [None]
  - ANGER [None]
  - FOOD ALLERGY [None]
  - PARANOIA [None]
